FAERS Safety Report 7874484-0 (Version None)
Quarter: 2011Q4

REPORT INFORMATION
  Report Type: 
  Country: None (occurrence: None)
  Receive Date: 20111030
  Receipt Date: 20110520
  Transmission Date: 20120403
  Serious: No
  Sender: FDA-Public Use
  Company Number: US-AMGEN-USASP2011026370

PATIENT
  Age: 58 Year
  Sex: Female

DRUGS (2)
  1. ENBREL [Suspect]
     Indication: OSTEOPOROSIS
     Dosage: 50 MG, QWK
     Dates: start: 20100401
  2. ENBREL [Suspect]
     Indication: RHEUMATOID ARTHRITIS

REACTIONS (4)
  - PAIN IN EXTREMITY [None]
  - GINGIVITIS [None]
  - RHEUMATOID ARTHRITIS [None]
  - INJECTION SITE PAIN [None]
